FAERS Safety Report 20921494 (Version 2)
Quarter: 2022Q2

REPORT INFORMATION
  Report Type: Report from Study
  Country: GB (occurrence: None)
  Receive Date: 20220606
  Receipt Date: 20220622
  Transmission Date: 20220721
  Serious: Yes (Hospitalization)
  Sender: FDA-Public Use
  Company Number: GB-ROCHE-3108475

PATIENT
  Age: 76 Year
  Sex: Male
  Weight: 70.7 kg

DRUGS (6)
  1. ATEZOLIZUMAB [Suspect]
     Active Substance: ATEZOLIZUMAB
     Indication: Lung neoplasm malignant
     Route: 041
     Dates: start: 20220519
  2. SENNA [Concomitant]
     Active Substance: SENNA LEAF\SENNOSIDES\SENNOSIDES A AND B
     Indication: Constipation
     Dosage: DATE OF LAST ADMINISTRATION PRIOR TO SAE: 13/MAY/2022
     Route: 048
     Dates: start: 2016
  3. LACTULOSE [Concomitant]
     Active Substance: LACTULOSE
     Indication: Constipation
     Dosage: 3.1-3.7 MG?DATE OF LAST ADMINISTRATION PRIOR TO SAE: 13/MAY/2022
     Route: 048
     Dates: start: 2016
  4. PREGABALIN [Concomitant]
     Active Substance: PREGABALIN
     Indication: Neuralgia
     Dosage: DATE OF LAST ADMINISTRATION PRIOR TO SAE: 22/MAY/2022
     Route: 048
     Dates: start: 2016
  5. ACETAMINOPHEN [Concomitant]
     Active Substance: ACETAMINOPHEN
     Indication: Neuralgia
     Dosage: DATE OF LAST ADMINISTRATION PRIOR TO SAE: 22/MAY/2022
     Route: 048
     Dates: start: 2016
  6. MORPHINE SULFATE [Concomitant]
     Active Substance: MORPHINE SULFATE
     Indication: Non-cardiac chest pain
     Dosage: DATE OF LAST ADMINISTRATION PRIOR TO SAE: 22/MAY/2022
     Route: 048
     Dates: start: 2016

REACTIONS (1)
  - Diarrhoea [Recovered/Resolved]

NARRATIVE: CASE EVENT DATE: 20220523
